FAERS Safety Report 10404295 (Version 1)
Quarter: 2014Q1

REPORT INFORMATION
  Report Type: Spontaneous
  Country: US (occurrence: None)
  Receive Date: 20131226
  Receipt Date: 20131226
  Transmission Date: 20141002
  Serious: Yes (Other)
  Sender: FDA-Public Use
  Company Number: PHEH2012US000901

PATIENT
  Age: 31 Year
  Sex: Male

DRUGS (1)
  1. EXTAVIA [Suspect]
     Indication: MULTIPLE SCLEROSIS
     Route: 058

REACTIONS (6)
  - Injection site mass [None]
  - Multiple sclerosis relapse [None]
  - Hypoaesthesia [None]
  - Injection site pain [None]
  - Injection site erythema [None]
  - Injection site warmth [None]
